FAERS Safety Report 15954309 (Version 2)
Quarter: 2019Q1

REPORT INFORMATION
  Report Type: Spontaneous
  Country: CA (occurrence: CA)
  Receive Date: 20190212
  Receipt Date: 20190212
  Transmission Date: 20190417
  Serious: Yes (Other)
  Sender: FDA-Public Use
  Company Number: PHHY2019CA030409

PATIENT
  Age: 48 Year
  Sex: Female

DRUGS (15)
  1. NEORAL [Suspect]
     Active Substance: CYCLOSPORINE
     Dosage: 1 DF, UNK
     Route: 048
  2. REMICADE [Suspect]
     Active Substance: INFLIXIMAB
     Indication: PRODUCT USED FOR UNKNOWN INDICATION
     Dosage: 350 MG, UNK
     Route: 042
  3. ENBREL [Suspect]
     Active Substance: ETANERCEPT
     Indication: PRODUCT USED FOR UNKNOWN INDICATION
     Dosage: 50 MG, Q2W
     Route: 058
  4. METHOTREXATE. [Suspect]
     Active Substance: METHOTREXATE
     Indication: PRODUCT USED FOR UNKNOWN INDICATION
     Dosage: UNK
     Route: 065
  5. HUMIRA [Suspect]
     Active Substance: ADALIMUMAB
     Indication: PRODUCT USED FOR UNKNOWN INDICATION
     Dosage: 40 MG, QW
     Route: 058
  6. CLOBETASOL [Concomitant]
     Active Substance: CLOBETASOL
     Indication: PRODUCT USED FOR UNKNOWN INDICATION
     Route: 065
  7. NEORAL [Suspect]
     Active Substance: CYCLOSPORINE
     Dosage: 1 DF, Q2W
     Route: 048
  8. ENBREL [Suspect]
     Active Substance: ETANERCEPT
     Dosage: 50 MG, QW
     Route: 058
  9. NEORAL [Suspect]
     Active Substance: CYCLOSPORINE
     Dosage: 1 DF, QW
     Route: 048
  10. COSENTYX [Suspect]
     Active Substance: SECUKINUMAB
     Indication: PSORIASIS
     Dosage: 300 MG, QMO
     Route: 058
  11. ENBREL [Suspect]
     Active Substance: ETANERCEPT
     Dosage: 50 MG, UNK
     Route: 058
  12. BETAMETHASONE DIPROPIONATE. [Concomitant]
     Active Substance: BETAMETHASONE DIPROPIONATE
     Indication: PRODUCT USED FOR UNKNOWN INDICATION
     Route: 065
  13. NEORAL [Suspect]
     Active Substance: CYCLOSPORINE
     Indication: PSORIASIS
     Dosage: 2 DF, QD
     Route: 048
  14. CICLOSPORIN [Suspect]
     Active Substance: CYCLOSPORINE
     Indication: PSORIASIS
     Dosage: 150 MG, QW
     Route: 048
  15. ACITRETIN. [Concomitant]
     Active Substance: ACITRETIN
     Indication: PRODUCT USED FOR UNKNOWN INDICATION
     Route: 065

REACTIONS (22)
  - Arthritis [Recovered/Resolved]
  - Localised oedema [Recovered/Resolved]
  - Psoriasis [Recovered/Resolved]
  - Glycosylated haemoglobin increased [Recovered/Resolved]
  - Urticaria [Recovered/Resolved]
  - Blood pressure increased [Recovered/Resolved]
  - Skin lesion [Recovered/Resolved]
  - Glucose tolerance impaired [Recovered/Resolved]
  - Upper respiratory tract infection [Recovered/Resolved]
  - Guttate psoriasis [Recovered/Resolved]
  - Blood alkaline phosphatase increased [Recovered/Resolved]
  - Bronchitis [Recovered/Resolved]
  - Oedema [Recovered/Resolved]
  - Haemoglobin decreased [Recovered/Resolved]
  - Skin irritation [Recovered/Resolved]
  - Blood iron decreased [Recovered/Resolved]
  - Infection [Recovered/Resolved]
  - Pneumonia [Recovered/Resolved]
  - Erythema [Recovered/Resolved]
  - Serum ferritin decreased [Recovered/Resolved]
  - Pruritus [Recovered/Resolved]
  - Sinusitis [Recovered/Resolved]
